FAERS Safety Report 25508384 (Version 2)
Quarter: 2025Q3

REPORT INFORMATION
  Report Type: Report from Study
  Country: CA (occurrence: CA)
  Receive Date: 20250703
  Receipt Date: 20250713
  Transmission Date: 20251020
  Serious: Yes (Hospitalization)
  Sender: ABBVIE
  Company Number: CA-ABBVIE-6353497

PATIENT
  Age: 91 Year
  Sex: Female

DRUGS (1)
  1. SKYRIZI [Suspect]
     Active Substance: RISANKIZUMAB-RZAA
     Indication: Crohn^s disease
     Dosage: RECENT DOSE ON 20 JUN 2025
     Route: 058

REACTIONS (4)
  - Gastroenteritis [Recovered/Resolved]
  - Cardiac disorder [Not Recovered/Not Resolved]
  - Cardiac device reprogramming [Unknown]
  - Nausea [Unknown]

NARRATIVE: CASE EVENT DATE: 20250101
